FAERS Safety Report 7913512-0 (Version None)
Quarter: 2011Q4

REPORT INFORMATION
  Report Type: 
  Country: None (occurrence: None)
  Receive Date: 20111110
  Receipt Date: 20111101
  Transmission Date: 20120403
  Serious: Yes (Other)
  Sender: FDA-Public Use
  Company Number: 2011SP040255

PATIENT
  Age: 68 Year
  Sex: Female

DRUGS (33)
  1. ALENDRONIC ACID [Concomitant]
  2. MIRTAZAPINE [Suspect]
     Indication: DEPRESSION
     Dosage: SEE IMAGE PO
     Route: 048
     Dates: start: 20081101, end: 20090201
  3. MIRTAZAPINE [Suspect]
     Indication: PANIC ATTACK
     Dosage: SEE IMAGE PO
     Route: 048
     Dates: start: 20081101, end: 20090201
  4. MIRTAZAPINE [Suspect]
     Indication: ANXIETY
     Dosage: SEE IMAGE PO
     Route: 048
     Dates: start: 20081101, end: 20090201
  5. MIRTAZAPINE [Suspect]
     Indication: DEPRESSION
     Dosage: SEE IMAGE PO
     Route: 048
     Dates: start: 20090501, end: 20090801
  6. MIRTAZAPINE [Suspect]
     Indication: PANIC ATTACK
     Dosage: SEE IMAGE PO
     Route: 048
     Dates: start: 20090501, end: 20090801
  7. MIRTAZAPINE [Suspect]
     Indication: ANXIETY
     Dosage: SEE IMAGE PO
     Route: 048
     Dates: start: 20090501, end: 20090801
  8. MIRTAZAPINE [Suspect]
     Indication: DEPRESSION
     Dosage: SEE IMAGE PO
     Route: 048
     Dates: start: 20080601
  9. MIRTAZAPINE [Suspect]
     Indication: PANIC ATTACK
     Dosage: SEE IMAGE PO
     Route: 048
     Dates: start: 20080601
  10. MIRTAZAPINE [Suspect]
     Indication: ANXIETY
     Dosage: SEE IMAGE PO
     Route: 048
     Dates: start: 20080601
  11. MIRTAZAPINE [Suspect]
     Indication: DEPRESSION
     Dosage: SEE IMAGE PO
     Route: 048
     Dates: start: 20090301, end: 20090401
  12. MIRTAZAPINE [Suspect]
     Indication: PANIC ATTACK
     Dosage: SEE IMAGE PO
     Route: 048
     Dates: start: 20090301, end: 20090401
  13. MIRTAZAPINE [Suspect]
     Indication: ANXIETY
     Dosage: SEE IMAGE PO
     Route: 048
     Dates: start: 20090301, end: 20090401
  14. IRBESARTAN [Concomitant]
  15. MIRTAZAPINE [Suspect]
     Indication: PANIC ATTACK
     Dosage: SEE IMAGE PO
     Route: 048
     Dates: start: 20090301, end: 20090401
  16. MIRTAZAPINE [Suspect]
     Indication: ANXIETY
     Dosage: SEE IMAGE PO
     Route: 048
     Dates: start: 20090301, end: 20090401
  17. MIRTAZAPINE [Suspect]
     Indication: DEPRESSION
     Dosage: SEE IMAGE PO
     Route: 048
     Dates: start: 20090301, end: 20090401
  18. MIRTAZAPINE [Suspect]
     Indication: PANIC ATTACK
     Dosage: SEE IMAGE PO
     Route: 048
     Dates: start: 20090401, end: 20090501
  19. MIRTAZAPINE [Suspect]
     Indication: ANXIETY
     Dosage: SEE IMAGE PO
     Route: 048
     Dates: start: 20090401, end: 20090501
  20. MIRTAZAPINE [Suspect]
     Indication: DEPRESSION
     Dosage: SEE IMAGE PO
     Route: 048
     Dates: start: 20090401, end: 20090501
  21. MIRTAZAPINE [Suspect]
     Indication: PANIC ATTACK
     Dosage: SEE IMAGE PO
     Route: 048
     Dates: start: 20080601
  22. MIRTAZAPINE [Suspect]
     Indication: ANXIETY
     Dosage: SEE IMAGE PO
     Route: 048
     Dates: start: 20080601
  23. MIRTAZAPINE [Suspect]
     Indication: DEPRESSION
     Dosage: SEE IMAGE PO
     Route: 048
     Dates: start: 20080601
  24. MIRTAZAPINE [Suspect]
     Indication: PANIC ATTACK
     Dosage: SEE IMAGE PO
     Route: 048
     Dates: start: 20090501, end: 20090801
  25. MIRTAZAPINE [Suspect]
     Indication: ANXIETY
     Dosage: SEE IMAGE PO
     Route: 048
     Dates: start: 20090501, end: 20090801
  26. MIRTAZAPINE [Suspect]
     Indication: DEPRESSION
     Dosage: SEE IMAGE PO
     Route: 048
     Dates: start: 20090501, end: 20090801
  27. MIRTAZAPINE [Suspect]
     Indication: PANIC ATTACK
     Dosage: SEE IMAGE PO
     Route: 048
     Dates: start: 20081101, end: 20090201
  28. MIRTAZAPINE [Suspect]
     Indication: ANXIETY
     Dosage: SEE IMAGE PO
     Route: 048
     Dates: start: 20081101, end: 20090201
  29. MIRTAZAPINE [Suspect]
     Indication: DEPRESSION
     Dosage: SEE IMAGE PO
     Route: 048
     Dates: start: 20081101, end: 20090201
  30. ATORVASTATIN [Concomitant]
  31. METFORMIN HCL [Concomitant]
  32. FOLIC ACID [Concomitant]
  33. SITAGLIPTIN [Concomitant]

REACTIONS (4)
  - NERVOUS SYSTEM DISORDER [None]
  - ACTIVITIES OF DAILY LIVING IMPAIRED [None]
  - TREMOR [None]
  - HYPERTONIA [None]
